FAERS Safety Report 4378951-6 (Version None)
Quarter: 2004Q2

REPORT INFORMATION
  Report Type: 
  Country: None (occurrence: None)
  Receive Date: 20040610
  Receipt Date: 20040531
  Transmission Date: 20050107
  Serious: Yes (Death)
  Sender: FDA-Public Use
  Company Number: 2004216923CN

PATIENT
  Age: 39 Year
  Sex: Male

DRUGS (2)
  1. SOLU-MEDROL [Suspect]
     Indication: ASTHMA
     Dosage: 40 MG, IV
     Route: 042
     Dates: start: 20040530, end: 20040530
  2. DEXAMETHASONE [Concomitant]

REACTIONS (1)
  - ASPHYXIA [None]
